FAERS Safety Report 5373480-5 (Version None)
Quarter: 2007Q2

REPORT INFORMATION
  Report Type: 
  Country: None (occurrence: None)
  Receive Date: 20070626
  Receipt Date: 20070626
  Transmission Date: 20071010
  Serious: Yes (Hospitalization)
  Sender: FDA-Public Use
  Company Number: None

PATIENT
  Sex: Female
  Weight: 66.2 kg

DRUGS (1)
  1. TAXOL [Suspect]

REACTIONS (13)
  - BLOOD PRESSURE DECREASED [None]
  - CHILLS [None]
  - DRUG HYPERSENSITIVITY [None]
  - EAR DISCOMFORT [None]
  - ERYTHEMA [None]
  - FEELING HOT [None]
  - FLUSHING [None]
  - LOSS OF CONSCIOUSNESS [None]
  - OXYGEN SATURATION DECREASED [None]
  - PARAESTHESIA [None]
  - RASH MACULAR [None]
  - TACHYCARDIA [None]
  - TREMOR [None]
